FAERS Safety Report 4304075-X (Version None)
Quarter: 2004Q1

REPORT INFORMATION
  Report Type: 
  Country: None (occurrence: None)
  Receive Date: 20040224
  Receipt Date: 20040212
  Transmission Date: 20041129
  Serious: Yes (Life-Threatening, Hospitalization)
  Sender: FDA-Public Use
  Company Number: 200410157BVD

PATIENT
  Age: 31 Year
  Sex: Female
  Weight: 70 kg

DRUGS (2)
  1. CIPROFLOXACIN [Suspect]
     Indication: SALPINGITIS
     Dosage: 250 MG, TOTAL DAILY
     Dates: start: 20031113, end: 20031117
  2. FEMRANETTE MIKRO [Concomitant]

REACTIONS (3)
  - HAEMOLYTIC URAEMIC SYNDROME [None]
  - PLASMAPHERESIS [None]
  - THROMBOTIC THROMBOCYTOPENIC PURPURA [None]
